FAERS Safety Report 9918253 (Version 2)
Quarter: 2014Q2

REPORT INFORMATION
  Report Type: Report from Study
  Country: US (occurrence: US)
  Receive Date: 20140224
  Receipt Date: 20140408
  Transmission Date: 20141212
  Serious: Yes (Other)
  Sender: FDA-Public Use
  Company Number: US-ROCHE-1353569

PATIENT
  Age: 67 Year
  Sex: Male

DRUGS (4)
  1. RITUXAN [Suspect]
     Indication: NON-HODGKIN^S LYMPHOMA UNSPECIFIED HISTOLOGY INDOLENT
     Dosage: 1L
     Route: 065
  2. RITUXAN [Suspect]
     Dosage: 2L
     Route: 065
  3. FLUDARA [Concomitant]
     Dosage: 1L
     Route: 065
  4. TREANDA [Concomitant]
     Dosage: 3L
     Route: 065

REACTIONS (1)
  - Bone marrow failure [Unknown]
